FAERS Safety Report 4414023-X (Version None)
Quarter: 2004Q3

REPORT INFORMATION
  Report Type: 
  Country: None (occurrence: None)
  Receive Date: 20040728
  Receipt Date: 20040715
  Transmission Date: 20050211
  Serious: Yes (Life-Threatening, Other)
  Sender: FDA-Public Use
  Company Number: 2003-DE-03427YA (2)

PATIENT
  Age: 54 Year
  Sex: Male

DRUGS (2)
  1. FLOMAX [Suspect]
     Dosage: 0.4 MG PO
     Route: 048
     Dates: start: 20021201, end: 20030701
  2. LIPITOR [Suspect]
     Indication: BLOOD CHOLESTEROL
     Dosage: PO
     Route: 048
     Dates: start: 19950101, end: 20030701

REACTIONS (2)
  - JAUNDICE CHOLESTATIC [None]
  - MYOSITIS [None]
